FAERS Safety Report 4893522-0 (Version None)
Quarter: 2006Q1

REPORT INFORMATION
  Report Type: 
  Country: None (occurrence: None)
  Receive Date: 20060127
  Receipt Date: 20060120
  Transmission Date: 20060701
  Serious: Yes (Other)
  Sender: FDA-Public Use
  Company Number: US-JNJFOC-20050703527

PATIENT
  Sex: Female
  Weight: 58.06 kg

DRUGS (6)
  1. REMICADE [Suspect]
     Route: 042
  2. REMICADE [Suspect]
     Indication: SPONDYLOARTHROPATHY
     Route: 042
  3. METHOTREXATE [Concomitant]
  4. PROPRANOLOL [Concomitant]
  5. TOPAMAX [Concomitant]
  6. PAXIL [Concomitant]

REACTIONS (2)
  - CELLULITIS [None]
  - PUSTULAR PSORIASIS [None]
